FAERS Safety Report 6456229-4 (Version None)
Quarter: 2009Q4

REPORT INFORMATION
  Report Type: 
  Country: None (occurrence: None)
  Receive Date: 20091124
  Receipt Date: 20091124
  Transmission Date: 20100525
  Serious: Yes (Other)
  Sender: FDA-Public Use
  Company Number: None

PATIENT
  Sex: Female
  Weight: 67.1324 kg

DRUGS (1)
  1. GENERIC LIOTHYROXINE [Suspect]
     Indication: HYPOTHYROIDISM
     Dosage: 5MCG TWICE A DAY

REACTIONS (5)
  - ASTHENIA [None]
  - CONSTIPATION [None]
  - DISTURBANCE IN ATTENTION [None]
  - FATIGUE [None]
  - PRODUCT SUBSTITUTION ISSUE [None]
